FAERS Safety Report 20572998 (Version 1)
Quarter: 2022Q1

REPORT INFORMATION
  Report Type: Spontaneous
  Country: US (occurrence: None)
  Receive Date: 20220309
  Receipt Date: 20220309
  Transmission Date: 20220424
  Serious: Yes (Hospitalization)
  Sender: FDA-Public Use
  Company Number: None

PATIENT
  Age: 75 Year
  Sex: Female
  Weight: 103.87 kg

DRUGS (6)
  1. PROAIR DIGIHALER [Suspect]
     Active Substance: ALBUTEROL SULFATE
     Indication: Chronic obstructive pulmonary disease
     Dosage: 90 MCG PRN IH?
     Route: 055
     Dates: start: 20211116
  2. TRELEGY ELLIPTA [Concomitant]
     Active Substance: FLUTICASONE FUROATE\UMECLIDINIUM BROMIDE\VILANTEROL TRIFENATATE
  3. PREDNISONE [Concomitant]
     Active Substance: PREDNISONE
  4. AZITHROMYCIN [Concomitant]
     Active Substance: AZITHROMYCIN
  5. ALBUTEROL [Concomitant]
     Active Substance: ALBUTEROL
  6. FLONASE [Concomitant]
     Active Substance: FLUTICASONE PROPIONATE

REACTIONS (1)
  - Chronic obstructive pulmonary disease [None]

NARRATIVE: CASE EVENT DATE: 20220303
